FAERS Safety Report 21558198 (Version 1)
Quarter: 2022Q4

REPORT INFORMATION
  Report Type: Spontaneous
  Country: JP (occurrence: JP)
  Receive Date: 20221107
  Receipt Date: 20221107
  Transmission Date: 20230112
  Serious: No
  Sender: FDA-Public Use
  Company Number: JP-MSD-M2022-46486

PATIENT
  Age: 13 Year
  Sex: Female

DRUGS (1)
  1. LAGEVRIO [Suspect]
     Active Substance: MOLNUPIRAVIR
     Dosage: 800 MILLIGRAM, BID
     Route: 048

REACTIONS (3)
  - Product administered to patient of inappropriate age [Unknown]
  - Wrong product administered [Unknown]
  - No adverse event [Unknown]
